FAERS Safety Report 17055097 (Version 1)
Quarter: 2019Q4

REPORT INFORMATION
  Report Type: Spontaneous
  Country: IT (occurrence: IT)
  Receive Date: 20191120
  Receipt Date: 20191120
  Transmission Date: 20200122
  Serious: Yes (Other)
  Sender: FDA-Public Use
  Company Number: NVSC2019IT040177

PATIENT
  Sex: Female

DRUGS (1)
  1. COSENTYX [Suspect]
     Active Substance: SECUKINUMAB
     Indication: ANKYLOSING SPONDYLITIS
     Dosage: UNK UNK, QMO (FOR A YEAR)
     Route: 065

REACTIONS (9)
  - Sacroiliitis [Unknown]
  - Balance disorder [Unknown]
  - Syringomyelia [Unknown]
  - Pain [Unknown]
  - Lumbar hernia [Unknown]
  - Bone marrow oedema [Unknown]
  - Movement disorder [Unknown]
  - Intervertebral disc protrusion [Unknown]
  - Disorientation [Unknown]
